FAERS Safety Report 7299474-0 (Version None)
Quarter: 2011Q1

REPORT INFORMATION
  Report Type: 
  Country: None (occurrence: None)
  Receive Date: 20110217
  Receipt Date: 20110204
  Transmission Date: 20110831
  Serious: Yes (Other)
  Sender: FDA-Public Use
  Company Number: A0614327E

PATIENT
  Sex: Female
  Weight: 72.8 kg

DRUGS (13)
  1. DOCETAXEL [Suspect]
     Dosage: 100MGM2 CYCLIC
     Route: 042
     Dates: start: 20060720
  2. VALOID [Concomitant]
     Dosage: 50MG THREE TIMES PER DAY
     Route: 048
  3. ZOFRAN [Concomitant]
     Dosage: 8MG TWICE PER DAY
     Route: 048
  4. CODEINE LINCTUS [Concomitant]
     Dosage: 10MG AS REQUIRED
     Route: 048
  5. SENOKOT [Concomitant]
     Dosage: 2TAB PER DAY
     Route: 048
  6. LAPATINIB [Suspect]
     Dosage: 500MG PER DAY
     Route: 048
     Dates: start: 20060720
  7. LACRILUBE [Concomitant]
     Dosage: 3DROP AS REQUIRED
     Route: 047
  8. LACTULOSE [Concomitant]
     Dosage: 30ML PER DAY
     Route: 048
  9. CIPROXIN [Concomitant]
     Dosage: 800MG PER DAY
     Route: 042
  10. CHLOROMYCETIN [Concomitant]
     Route: 047
  11. KLACID [Concomitant]
     Dosage: 1G PER DAY
  12. TRASTUZUMAB [Suspect]
     Dosage: 4MGK WEEKLY
     Route: 042
     Dates: start: 20060720
  13. SLOW-K [Concomitant]
     Dosage: 2TAB PER DAY
     Route: 048

REACTIONS (1)
  - NEUTROPENIA [None]
